FAERS Safety Report 11846640 (Version 1)
Quarter: 2015Q4

REPORT INFORMATION
  Report Type: Spontaneous
  Country: US (occurrence: US)
  Receive Date: 20151217
  Receipt Date: 20151217
  Transmission Date: 20160305
  Serious: No
  Sender: FDA-Public Use
  Company Number: US-ROCHE-1515395

PATIENT
  Age: 5 Year
  Sex: Male
  Weight: 21.79 kg

DRUGS (1)
  1. TAMIFLU [Suspect]
     Active Substance: OSELTAMIVIR PHOSPHATE
     Indication: INFLUENZA
     Dosage: FORM STRENGTH: 6 MG/ML
     Route: 048
     Dates: start: 20141216, end: 20141221

REACTIONS (4)
  - Mouth ulceration [Not Recovered/Not Resolved]
  - Aphthous ulcer [Recovering/Resolving]
  - Erythema [Not Recovered/Not Resolved]
  - Pain [Not Recovered/Not Resolved]

NARRATIVE: CASE EVENT DATE: 20141221
